FAERS Safety Report 23096493 (Version 2)
Quarter: 2023Q4

REPORT INFORMATION
  Report Type: Spontaneous
  Country: US (occurrence: US)
  Receive Date: 20231023
  Receipt Date: 20231025
  Transmission Date: 20240109
  Serious: No
  Sender: FDA-Public Use
  Company Number: US-PFIZER INC-202300334417

PATIENT
  Age: 61 Year
  Sex: Female
  Weight: 74.83 kg

DRUGS (1)
  1. NURTEC ODT [Suspect]
     Active Substance: RIMEGEPANT SULFATE
     Indication: Migraine prophylaxis
     Dosage: 75 MG, ALTERNATE DAY (ONE TABLET EVERY OTHER DAY, TAKE ONCE A DAY)
     Dates: start: 20231017

REACTIONS (7)
  - Nausea [Not Recovered/Not Resolved]
  - Dizziness [Not Recovered/Not Resolved]
  - Ocular discomfort [Not Recovered/Not Resolved]
  - Fatigue [Unknown]
  - Abdominal pain upper [Unknown]
  - Strabismus [Not Recovered/Not Resolved]
  - Headache [Not Recovered/Not Resolved]
